FAERS Safety Report 18994136 (Version 1)
Quarter: 2021Q1

REPORT INFORMATION
  Report Type: Report from Study
  Country: BR (occurrence: BR)
  Receive Date: 20210311
  Receipt Date: 20210311
  Transmission Date: 20210420
  Serious: Yes (Other)
  Sender: FDA-Public Use
  Company Number: BR-UCBSA-2021010572

PATIENT
  Sex: Female
  Weight: 57 kg

DRUGS (5)
  1. CERTOLIZUMAB PEGOL [Suspect]
     Active Substance: CERTOLIZUMAB PEGOL
     Indication: RHEUMATOID ARTHRITIS
     Dosage: UNK
     Route: 058
  2. DICLIN [DICLOFENAC SODIUM] [Concomitant]
     Indication: ORAL CONTRACEPTION
     Dosage: UNK
     Route: 048
     Dates: start: 2010
  3. LOCOID [Concomitant]
     Active Substance: HYDROCORTISONE BUTYRATE
     Indication: THYROID DISORDER
     Dosage: 112 MILLIGRAM, ONCE DAILY (QD)
     Route: 048
  4. CERTOLIZUMAB PEGOL [Suspect]
     Active Substance: CERTOLIZUMAB PEGOL
     Dosage: 200 MILLIGRAM, EV 15 DAYS
     Route: 058
     Dates: start: 202101
  5. LEFLUNOMIDA [Concomitant]
     Active Substance: LEFLUNOMIDE
     Indication: RHEUMATOID ARTHRITIS
     Dosage: UNK
     Route: 048

REACTIONS (2)
  - Syncope [Recovered/Resolved]
  - Blood pressure decreased [Recovered/Resolved]
